FAERS Safety Report 12949973 (Version 1)
Quarter: 2016Q4

REPORT INFORMATION
  Report Type: Spontaneous
  Country: CN (occurrence: CN)
  Receive Date: 20161116
  Receipt Date: 20161116
  Transmission Date: 20170207
  Serious: No
  Sender: FDA-Public Use
  Company Number: CN-B. BRAUN MEDICAL INC.-1059624

PATIENT
  Age: 59 Year
  Sex: Male

DRUGS (2)
  1. NUTRILIPID I.V. FAT EMULSION [Suspect]
     Active Substance: SOYBEAN OIL
     Indication: MALNUTRITION
     Route: 042
  2. DEXAMETHASONE. [Concomitant]
     Active Substance: DEXAMETHASONE

REACTIONS (2)
  - Chills [Recovered/Resolved]
  - Pyrexia [Recovered/Resolved]
